FAERS Safety Report 5398153-4 (Version None)
Quarter: 2007Q3

REPORT INFORMATION
  Report Type: 
  Country: None (occurrence: None)
  Receive Date: 20070726
  Receipt Date: 20070715
  Transmission Date: 20080115
  Serious: Yes (Hospitalization)
  Sender: FDA-Public Use
  Company Number: US-SHR-US-2006-038942

PATIENT
  Age: 32 Year
  Sex: Female

DRUGS (1)
  1. BETASERON [Suspect]
     Indication: RELAPSING-REMITTING MULTIPLE SCLEROSIS
     Route: 058
     Dates: start: 20050906, end: 20061031

REACTIONS (4)
  - MENINGITIS ASEPTIC [None]
  - NOSOCOMIAL INFECTION [None]
  - PNEUMONIA [None]
  - PYELONEPHRITIS [None]
